FAERS Safety Report 11425218 (Version 1)
Quarter: 2015Q3

REPORT INFORMATION
  Report Type: Spontaneous
  Country: AT (occurrence: AT)
  Receive Date: 20150827
  Receipt Date: 20150827
  Transmission Date: 20151125
  Serious: Yes (Death)
  Sender: FDA-Public Use
  Company Number: AT-MYLANLABS-2015M1028614

PATIENT

DRUGS (2)
  1. TRANEXAMIC ACID. [Suspect]
     Active Substance: TRANEXAMIC ACID
     Indication: HYPERFIBRINOLYSIS
     Dosage: 20 MG/KG
     Route: 050
  2. HAEMOCOMPLETTAN P [Concomitant]
     Active Substance: FIBRINOGEN HUMAN
     Indication: HYPERFIBRINOLYSIS
     Dosage: 4 G
     Route: 065

REACTIONS (2)
  - Multi-organ failure [Fatal]
  - Hypercoagulation [Fatal]
